FAERS Safety Report 7752538-7 (Version None)
Quarter: 2011Q3

REPORT INFORMATION
  Report Type: 
  Country: None (occurrence: None)
  Receive Date: 20110915
  Receipt Date: 20110906
  Transmission Date: 20111222
  Serious: Yes (Hospitalization)
  Sender: FDA-Public Use
  Company Number: GB-MILLENNIUM PHARMACEUTICALS, INC.-2008-02671

PATIENT

DRUGS (9)
  1. VELCADE [Suspect]
     Indication: MULTIPLE MYELOMA
     Dosage: 2.2 MG, UNK
     Route: 042
     Dates: start: 20080506, end: 20080620
  2. ZOMETA [Concomitant]
     Dosage: 4 MG, UNK
  3. MELPHALAN [Suspect]
     Indication: MULTIPLE MYELOMA
     Dosage: 25.5 MG, UNK
     Route: 042
     Dates: start: 20080509, end: 20080613
  4. NAPROXEN [Concomitant]
  5. ACETAMINOPHEN [Concomitant]
  6. ESTRADIOL VALERATE [Concomitant]
     Indication: HORMONE REPLACEMENT THERAPY
     Dosage: 2 MG, UNK
  7. CODEINE SULFATE [Concomitant]
  8. IDARUBICIN HCL [Suspect]
     Indication: MULTIPLE MYELOMA
     Dosage: 5 MG/M2, UNK
     Route: 048
     Dates: start: 20080509, end: 20080614
  9. DIHYDROCODEINE BITARTRATE INJ [Concomitant]

REACTIONS (4)
  - EAR PAIN [None]
  - PYREXIA [None]
  - DEAFNESS [None]
  - OROPHARYNGEAL PAIN [None]
